FAERS Safety Report 9088993 (Version 1)
Quarter: 2013Q1

REPORT INFORMATION
  Report Type: Report from Study
  Country: US (occurrence: US)
  Receive Date: 20130201
  Receipt Date: 20130201
  Transmission Date: 20140127
  Serious: No
  Sender: FDA-Public Use
  Company Number: US-ABBOTT-12P-163-1020786-00

PATIENT
  Age: 28 Year
  Sex: Male

DRUGS (4)
  1. HUMIRA [Suspect]
     Indication: CROHN^S DISEASE
  2. XANAX [Concomitant]
     Indication: ANXIETY
  3. PHENERGAN [Concomitant]
     Indication: NAUSEA
  4. B12 [Concomitant]
     Indication: PRODUCT USED FOR UNKNOWN INDICATION
     Dosage: 1CC/ML

REACTIONS (1)
  - Rash [Not Recovered/Not Resolved]
